FAERS Safety Report 10029405 (Version 3)
Quarter: 2014Q2

REPORT INFORMATION
  Report Type: Spontaneous
  Country: TR (occurrence: TR)
  Receive Date: 20140322
  Receipt Date: 20140402
  Transmission Date: 20141212
  Serious: Yes (Death, Hospitalization)
  Sender: FDA-Public Use
  Company Number: PHHY2014TR031853

PATIENT
  Age: 36 Year
  Sex: Male
  Weight: 87 kg

DRUGS (2)
  1. AFINITOR [Suspect]
     Indication: RENAL CELL CARCINOMA
     Dosage: 10 MG, DAILY
     Route: 048
     Dates: start: 20140226, end: 20140307
  2. BONEFOS [Concomitant]
     Indication: OSTEOLYSIS
     Dosage: 800 MG, QD
     Route: 048
     Dates: start: 20140115

REACTIONS (10)
  - Death [Fatal]
  - General physical health deterioration [Unknown]
  - Eye colour change [Recovering/Resolving]
  - Gait disturbance [Recovering/Resolving]
  - Blood bilirubin increased [Recovering/Resolving]
  - Pneumonitis [Recovering/Resolving]
  - Chest pain [Unknown]
  - Malaise [Recovering/Resolving]
  - Dyspnoea [Recovering/Resolving]
  - Anaemia [Recovering/Resolving]
